FAERS Safety Report 9862359 (Version 1)
Quarter: 2014Q1

REPORT INFORMATION
  Report Type: Spontaneous
  Country: ES (occurrence: ES)
  Receive Date: 20140203
  Receipt Date: 20140203
  Transmission Date: 20141002
  Serious: Yes (Hospitalization)
  Sender: FDA-Public Use
  Company Number: ES-NOVOPROD-399039

PATIENT
  Age: 29 Year
  Sex: Female

DRUGS (2)
  1. LEVEMIR FLEXPEN [Suspect]
     Indication: GESTATIONAL DIABETES
     Dosage: UNK
     Route: 065
  2. LEVEMIR FLEXPEN [Suspect]
     Indication: LATENT AUTOIMMUNE DIABETES IN ADULTS

REACTIONS (3)
  - Premature labour [Unknown]
  - Hypersensitivity [Unknown]
  - Exposure during pregnancy [Unknown]
